FAERS Safety Report 14181674 (Version 2)
Quarter: 2017Q4

REPORT INFORMATION
  Report Type: Spontaneous
  Country: JP (occurrence: JP)
  Receive Date: 20171113
  Receipt Date: 20171212
  Transmission Date: 20180321
  Serious: Yes (Hospitalization, Other)
  Sender: FDA-Public Use
  Company Number: JP-ROCHE-1958603

PATIENT
  Age: 56 Year
  Sex: Male
  Weight: 46 kg

DRUGS (74)
  1. RITUXAN [Suspect]
     Active Substance: RITUXIMAB
     Dosage: 10 MG/ML
     Route: 041
     Dates: start: 20090203, end: 20090203
  2. FLUDARA [Concomitant]
     Active Substance: FLUDARABINE PHOSPHATE
     Indication: DIFFUSE LARGE B-CELL LYMPHOMA
     Route: 042
     Dates: start: 201306
  3. FLUDARA [Concomitant]
     Active Substance: FLUDARABINE PHOSPHATE
     Route: 048
     Dates: start: 20100811, end: 20100814
  4. FLUDARA [Concomitant]
     Active Substance: FLUDARABINE PHOSPHATE
     Route: 048
     Dates: start: 20130508, end: 20130511
  5. SAXIZON [Concomitant]
     Active Substance: HYDROCORTISONE SODIUM SUCCINATE
     Route: 041
     Dates: start: 20090203, end: 20090203
  6. POLARAMINE [Concomitant]
     Active Substance: DEXCHLORPHENIRAMINE MALEATE
     Route: 041
     Dates: start: 20090528, end: 20090528
  7. POLARAMINE [Concomitant]
     Active Substance: DEXCHLORPHENIRAMINE MALEATE
     Route: 041
     Dates: start: 20100921, end: 20100921
  8. RITUXAN [Suspect]
     Active Substance: RITUXIMAB
     Dosage: 10 MG/ML
     Route: 041
     Dates: start: 20090528, end: 20090528
  9. RITUXAN [Suspect]
     Active Substance: RITUXIMAB
     Dosage: 10 MG/ML
     Route: 041
     Dates: start: 20100810, end: 20100810
  10. FLUDARA [Concomitant]
     Active Substance: FLUDARABINE PHOSPHATE
     Route: 048
     Dates: start: 20110316, end: 20110319
  11. SAXIZON [Concomitant]
     Active Substance: HYDROCORTISONE SODIUM SUCCINATE
     Route: 041
     Dates: start: 20100810, end: 20100810
  12. SAXIZON [Concomitant]
     Active Substance: HYDROCORTISONE SODIUM SUCCINATE
     Route: 041
     Dates: start: 20130507, end: 20130507
  13. POLARAMINE [Concomitant]
     Active Substance: DEXCHLORPHENIRAMINE MALEATE
     Route: 041
     Dates: start: 20090825, end: 20090825
  14. POLARAMINE [Concomitant]
     Active Substance: DEXCHLORPHENIRAMINE MALEATE
     Route: 041
     Dates: start: 20100810, end: 20100810
  15. ENDOXAN [Concomitant]
     Active Substance: CYCLOPHOSPHAMIDE
     Route: 041
     Dates: start: 20081217, end: 20081217
  16. PREDONINE [Concomitant]
     Active Substance: PREDNISOLONE
     Route: 048
     Dates: start: 20090114, end: 20090117
  17. BARACLUDE [Concomitant]
     Active Substance: ENTECAVIR
     Route: 048
     Dates: start: 20081029, end: 201508
  18. RITUXAN [Suspect]
     Active Substance: RITUXIMAB
     Indication: DIFFUSE LARGE B-CELL LYMPHOMA
     Dosage: 10 MG/ML
     Route: 041
     Dates: start: 20081030, end: 20081030
  19. RITUXAN [Suspect]
     Active Substance: RITUXIMAB
     Dosage: 10 MG/ML
     Route: 041
     Dates: start: 20081125, end: 20081125
  20. RITUXAN [Suspect]
     Active Substance: RITUXIMAB
     Dosage: 10 MG/ML
     Route: 041
     Dates: start: 20081216, end: 20081216
  21. RITUXAN [Suspect]
     Active Substance: RITUXIMAB
     Dosage: 10 MG/ML
     Route: 041
     Dates: start: 20090825, end: 20090825
  22. SAXIZON [Concomitant]
     Active Substance: HYDROCORTISONE SODIUM SUCCINATE
     Route: 041
     Dates: start: 20081125, end: 20081125
  23. SAXIZON [Concomitant]
     Active Substance: HYDROCORTISONE SODIUM SUCCINATE
     Route: 041
     Dates: start: 20110315, end: 20110315
  24. POLARAMINE [Concomitant]
     Active Substance: DEXCHLORPHENIRAMINE MALEATE
     Route: 041
     Dates: start: 20081216, end: 20081216
  25. ONCOVIN [Concomitant]
     Active Substance: VINCRISTINE SULFATE
     Route: 041
     Dates: start: 20090204, end: 20090204
  26. CYCLOPHOSPHAMIDE. [Suspect]
     Active Substance: CYCLOPHOSPHAMIDE
     Indication: DIFFUSE LARGE B-CELL LYMPHOMA
     Route: 042
  27. SAXIZON [Concomitant]
     Active Substance: HYDROCORTISONE SODIUM SUCCINATE
     Route: 041
     Dates: start: 20090224, end: 20090224
  28. POLARAMINE [Concomitant]
     Active Substance: DEXCHLORPHENIRAMINE MALEATE
     Route: 041
     Dates: start: 20090113, end: 20090113
  29. POLARAMINE [Concomitant]
     Active Substance: DEXCHLORPHENIRAMINE MALEATE
     Route: 041
     Dates: start: 20130507, end: 20130507
  30. ENDOXAN [Concomitant]
     Active Substance: CYCLOPHOSPHAMIDE
     Route: 041
     Dates: start: 20090114, end: 20090114
  31. ADRIACIN [Concomitant]
     Active Substance: DOXORUBICIN HYDROCHLORIDE
     Route: 041
     Dates: start: 20090114, end: 20090114
  32. ADRIACIN [Concomitant]
     Active Substance: DOXORUBICIN HYDROCHLORIDE
     Route: 041
     Dates: start: 20090204, end: 20090204
  33. ADRIACIN [Concomitant]
     Active Substance: DOXORUBICIN HYDROCHLORIDE
     Route: 041
     Dates: start: 20090225, end: 20090225
  34. ONCOVIN [Concomitant]
     Active Substance: VINCRISTINE SULFATE
     Route: 041
     Dates: start: 20090225, end: 20090225
  35. RITUXAN [Suspect]
     Active Substance: RITUXIMAB
     Dosage: 10 MG/ML
     Route: 041
     Dates: start: 20090113, end: 20090113
  36. RITUXAN [Suspect]
     Active Substance: RITUXIMAB
     Dosage: 10 MG/ML
     Route: 041
     Dates: start: 20090224, end: 20090224
  37. RITUXAN [Suspect]
     Active Substance: RITUXIMAB
     Dosage: 10 MG/ML
     Route: 041
     Dates: start: 20130507, end: 20130507
  38. PREDNISOLONE. [Suspect]
     Active Substance: PREDNISOLONE
     Indication: DIFFUSE LARGE B-CELL LYMPHOMA
     Route: 048
  39. SAXIZON [Concomitant]
     Active Substance: HYDROCORTISONE SODIUM SUCCINATE
     Route: 041
     Dates: start: 20090113, end: 20090113
  40. SAXIZON [Concomitant]
     Active Substance: HYDROCORTISONE SODIUM SUCCINATE
     Route: 041
     Dates: start: 20100921, end: 20100921
  41. POLARAMINE [Concomitant]
     Active Substance: DEXCHLORPHENIRAMINE MALEATE
     Route: 041
     Dates: start: 20081125, end: 20081125
  42. POLARAMINE [Concomitant]
     Active Substance: DEXCHLORPHENIRAMINE MALEATE
     Route: 041
     Dates: start: 20110315, end: 20110315
  43. ADRIACIN [Concomitant]
     Active Substance: DOXORUBICIN HYDROCHLORIDE
     Route: 041
     Dates: start: 20081031, end: 20081031
  44. ONCOVIN [Concomitant]
     Active Substance: VINCRISTINE SULFATE
     Route: 041
     Dates: start: 20081031, end: 20081031
  45. ONCOVIN [Concomitant]
     Active Substance: VINCRISTINE SULFATE
     Route: 041
     Dates: start: 20081217, end: 20081217
  46. PREDONINE [Concomitant]
     Active Substance: PREDNISOLONE
     Route: 048
     Dates: start: 20081126, end: 20081129
  47. PROMAC (JAPAN) [Concomitant]
     Route: 048
     Dates: start: 20081029, end: 20090113
  48. RITUXAN [Suspect]
     Active Substance: RITUXIMAB
     Dosage: 10 MG/ML
     Route: 041
     Dates: start: 20100921, end: 20100921
  49. DOXORUBICIN HYDROCHLORIDE. [Suspect]
     Active Substance: DOXORUBICIN HYDROCHLORIDE
     Indication: DIFFUSE LARGE B-CELL LYMPHOMA
     Route: 042
  50. SAXIZON [Concomitant]
     Active Substance: HYDROCORTISONE SODIUM SUCCINATE
     Indication: PREMEDICATION
     Route: 041
     Dates: start: 20081030, end: 20081030
  51. POLARAMINE [Concomitant]
     Active Substance: DEXCHLORPHENIRAMINE MALEATE
     Route: 041
     Dates: start: 20090203, end: 20090203
  52. URSODEOXYCHOLIC ACID [Concomitant]
     Active Substance: URSODIOL
  53. RITUXAN [Suspect]
     Active Substance: RITUXIMAB
     Dosage: 10 MG/ML
     Route: 041
     Dates: start: 20110315, end: 20110315
  54. SAXIZON [Concomitant]
     Active Substance: HYDROCORTISONE SODIUM SUCCINATE
     Route: 041
     Dates: start: 20081216, end: 20081216
  55. SAXIZON [Concomitant]
     Active Substance: HYDROCORTISONE SODIUM SUCCINATE
     Route: 041
     Dates: start: 20090825, end: 20090825
  56. POLARAMINE [Concomitant]
     Active Substance: DEXCHLORPHENIRAMINE MALEATE
     Indication: PREMEDICATION
     Route: 041
     Dates: start: 20081030, end: 20081030
  57. ENDOXAN [Concomitant]
     Active Substance: CYCLOPHOSPHAMIDE
     Route: 041
     Dates: start: 20081126, end: 20081126
  58. ENDOXAN [Concomitant]
     Active Substance: CYCLOPHOSPHAMIDE
     Route: 041
     Dates: start: 20090204, end: 20090204
  59. ADRIACIN [Concomitant]
     Active Substance: DOXORUBICIN HYDROCHLORIDE
     Route: 041
     Dates: start: 20081126, end: 20081126
  60. ADRIACIN [Concomitant]
     Active Substance: DOXORUBICIN HYDROCHLORIDE
     Route: 041
     Dates: start: 20081217, end: 20081217
  61. ONCOVIN [Concomitant]
     Active Substance: VINCRISTINE SULFATE
     Route: 041
     Dates: start: 20090114, end: 20090114
  62. PREDONINE [Concomitant]
     Active Substance: PREDNISOLONE
     Route: 048
     Dates: start: 20081031, end: 20081103
  63. PREDONINE [Concomitant]
     Active Substance: PREDNISOLONE
     Route: 048
     Dates: start: 20081217, end: 20081217
  64. PREDONINE [Concomitant]
     Active Substance: PREDNISOLONE
     Route: 048
     Dates: start: 20090204, end: 20090207
  65. ISODINE [Concomitant]
     Active Substance: POVIDONE-IODINE
     Indication: INFECTION PROPHYLAXIS
     Route: 048
     Dates: start: 20081029, end: 20090113
  66. RITUXAN [Suspect]
     Active Substance: RITUXIMAB
     Dosage: 10 MG/ML, IN COMBINATION WITH FLUDARABINE PHOSPHATE
     Route: 042
     Dates: end: 201306
  67. VINCRISTINE SULFATE. [Suspect]
     Active Substance: VINCRISTINE SULFATE
     Indication: DIFFUSE LARGE B-CELL LYMPHOMA
     Route: 042
  68. FLUDARA [Concomitant]
     Active Substance: FLUDARABINE PHOSPHATE
     Route: 048
     Dates: start: 20100922, end: 20100925
  69. SAXIZON [Concomitant]
     Active Substance: HYDROCORTISONE SODIUM SUCCINATE
     Route: 041
     Dates: start: 20090528, end: 20090528
  70. POLARAMINE [Concomitant]
     Active Substance: DEXCHLORPHENIRAMINE MALEATE
     Route: 041
     Dates: start: 20090224, end: 20090224
  71. ENDOXAN [Concomitant]
     Active Substance: CYCLOPHOSPHAMIDE
     Route: 041
     Dates: start: 20081031, end: 20081031
  72. ENDOXAN [Concomitant]
     Active Substance: CYCLOPHOSPHAMIDE
     Route: 041
     Dates: start: 20090225, end: 20090225
  73. ONCOVIN [Concomitant]
     Active Substance: VINCRISTINE SULFATE
     Route: 041
     Dates: start: 20081126, end: 20081126
  74. PREDONINE [Concomitant]
     Active Substance: PREDNISOLONE
     Route: 048
     Dates: start: 20090225, end: 20090228

REACTIONS (3)
  - Hepatitis acute [Recovered/Resolved]
  - Hepatitis B reactivation [Recovered/Resolved]
  - Pneumocystis jirovecii pneumonia [Unknown]

NARRATIVE: CASE EVENT DATE: 201505
